FAERS Safety Report 15205833 (Version 1)
Quarter: 2018Q4

REPORT INFORMATION
  Report Type: Spontaneous
  Country: ES (occurrence: ES)
  Receive Date: 20180727
  Receipt Date: 20180727
  Transmission Date: 20190204
  Serious: Yes (Hospitalization)
  Sender: FDA-Public Use
  Company Number: ES-TEVA-2018-ES-929867

PATIENT
  Age: 71 Year
  Sex: Male

DRUGS (2)
  1. LEVOFLOXACINO [Suspect]
     Active Substance: LEVOFLOXACIN
     Indication: RESPIRATORY TRACT INFECTION
     Route: 065
     Dates: start: 20171010, end: 20171014
  2. PECTOX LISINA 2,7 G GRANULADO , 8 SOBRES [Suspect]
     Active Substance: CARBOCYSTEINE LYSINE
     Indication: RESPIRATORY TRACT INFECTION
     Route: 065
     Dates: start: 20171010, end: 20171014

REACTIONS (1)
  - Abdominal pain upper [Unknown]

NARRATIVE: CASE EVENT DATE: 20171014
